FAERS Safety Report 20923984 (Version 1)
Quarter: 2022Q2

REPORT INFORMATION
  Report Type: Spontaneous
  Country: DE (occurrence: DE)
  Receive Date: 20220607
  Receipt Date: 20220607
  Transmission Date: 20220721
  Serious: Yes (Hospitalization)
  Sender: FDA-Public Use
  Company Number: DE-002147023-NVSC2022DE096262

PATIENT
  Sex: Male

DRUGS (1)
  1. METHOTREXATE SODIUM [Suspect]
     Active Substance: METHOTREXATE SODIUM
     Dosage: DAILY DOSE INSTEAD OF A WEEKLY DOSE
     Route: 065

REACTIONS (3)
  - Respiratory symptom [Unknown]
  - Product prescribing error [Unknown]
  - Overdose [Unknown]
